FAERS Safety Report 10417571 (Version 3)
Quarter: 2014Q4

REPORT INFORMATION
  Report Type: Report from Study
  Country: AR (occurrence: AR)
  Receive Date: 20140829
  Receipt Date: 20141110
  Transmission Date: 20150528
  Serious: Yes (Hospitalization, Other)
  Sender: FDA-Public Use
  Company Number: AR-ROCHE-1456253

PATIENT
  Age: 58 Year
  Sex: Female

DRUGS (10)
  1. MEPREDNISONA [Concomitant]
     Active Substance: MEPREDNISONE
  2. XOLAIR [Suspect]
     Active Substance: OMALIZUMAB
     Route: 058
     Dates: start: 201408, end: 201408
  3. MONTELUKAST [Concomitant]
     Active Substance: MONTELUKAST SODIUM
  4. SALMETEROL [Concomitant]
     Active Substance: SALMETEROL
  5. XOLAIR [Suspect]
     Active Substance: OMALIZUMAB
     Route: 058
     Dates: start: 20140211
  6. ENALAPRIL [Concomitant]
     Active Substance: ENALAPRIL
  7. AMLODIPINE [Concomitant]
     Active Substance: AMLODIPINE BESYLATE
  8. XOLAIR [Suspect]
     Active Substance: OMALIZUMAB
     Indication: ASTHMA
     Route: 058
     Dates: start: 20131119
  9. SALBUTAMOL [Concomitant]
     Active Substance: ALBUTEROL
  10. LOSARTAN [Concomitant]
     Active Substance: LOSARTAN

REACTIONS (5)
  - Agitation [Not Recovered/Not Resolved]
  - Feeling abnormal [Unknown]
  - Pneumonia [Unknown]
  - Nervousness [Unknown]
  - Pneumonia pneumococcal [Unknown]

NARRATIVE: CASE EVENT DATE: 201405
